FAERS Safety Report 6241516-5 (Version None)
Quarter: 2009Q2

REPORT INFORMATION
  Report Type: 
  Country: None (occurrence: None)
  Receive Date: 20090623
  Receipt Date: 20031002
  Transmission Date: 20091009
  Serious: Yes (Hospitalization)
  Sender: FDA-Public Use
  Company Number: BE-ROCHE-347768

PATIENT
  Sex: Male
  Weight: 83.4 kg

DRUGS (24)
  1. DACLIZUMAB [Suspect]
     Route: 042
     Dates: start: 20030808, end: 20030808
  2. DACLIZUMAB [Suspect]
     Dosage: WEEK 2,4,6
     Route: 042
     Dates: start: 20030822
  3. DACLIZUMAB [Suspect]
     Route: 042
     Dates: start: 20031001, end: 20031002
  4. MYCOPHENOLATE MOFETIL [Suspect]
     Dosage: DRUG: MMF
     Route: 048
     Dates: start: 20030808
  5. MYCOPHENOLATE MOFETIL [Suspect]
     Route: 048
     Dates: start: 20030809
  6. MYCOPHENOLATE MOFETIL [Suspect]
     Route: 048
     Dates: start: 20031127
  7. TACROLIMUS [Suspect]
     Route: 048
     Dates: start: 20030808
  8. METHYLPREDNISOLONE [Suspect]
     Route: 048
     Dates: start: 20030809
  9. INDAPAMIDE [Concomitant]
     Dosage: ROUTE: PL
     Route: 050
     Dates: start: 20030917, end: 20031112
  10. ACETYLSALICYLIC ACID [Concomitant]
     Route: 048
     Dates: start: 20030827
  11. LISINOPRIL [Concomitant]
     Route: 048
     Dates: start: 20030827, end: 20031112
  12. OMEPRAZOL [Concomitant]
     Route: 048
     Dates: start: 20030814
  13. OMEPRAZOL [Concomitant]
     Route: 048
     Dates: start: 20031128
  14. OMEPRAZOL [Concomitant]
     Route: 048
     Dates: start: 20040420
  15. GANCICLOVIR [Concomitant]
     Route: 048
     Dates: start: 20030811
  16. GANCICLOVIR [Concomitant]
     Route: 048
     Dates: start: 20030816, end: 20031112
  17. EUSAPRIM [Concomitant]
     Route: 048
     Dates: start: 20030810, end: 20031112
  18. IRBESARTAN [Concomitant]
     Route: 048
     Dates: start: 20031125, end: 20031128
  19. IRBESARTAN [Concomitant]
     Route: 048
     Dates: start: 20041019
  20. CEFAZOLIN [Concomitant]
     Route: 042
     Dates: start: 20030808, end: 20030810
  21. EPOETIN ALFA [Concomitant]
     Dosage: DRUG: DAREPOETINE ALFA
     Route: 058
     Dates: start: 20030816
  22. DOXYCYCLINE [Concomitant]
     Route: 048
     Dates: start: 20030930, end: 20031019
  23. LISINOPRIL [Concomitant]
     Route: 048
     Dates: start: 20031112, end: 20031125
  24. METHYLPREDNISOLONE [Suspect]
     Route: 042
     Dates: start: 20030808, end: 20030808

REACTIONS (2)
  - COLITIS [None]
  - DIARRHOEA [None]
